FAERS Safety Report 16337118 (Version 5)
Quarter: 2019Q4

REPORT INFORMATION
  Report Type: Spontaneous
  Country: PR (occurrence: PR)
  Receive Date: 20190521
  Receipt Date: 20191218
  Transmission Date: 20200122
  Serious: No
  Sender: FDA-Public Use
  Company Number: PR-PFIZER INC-2019212810

PATIENT
  Age: 46 Year
  Sex: Female
  Weight: 70.3 kg

DRUGS (4)
  1. IBRANCE [Suspect]
     Active Substance: PALBOCICLIB
     Indication: BREAST CANCER FEMALE
     Dosage: 125 MG, 1X/DAY (FOR 21 DAYS)
     Route: 048
     Dates: start: 20190116
  2. IBRANCE [Suspect]
     Active Substance: PALBOCICLIB
     Dosage: 125 MG, CYCLIC (1 CAPSULE DAILY ON 21 DAYS AND OFF7 DAYS.)
     Route: 048
  3. IBRANCE [Suspect]
     Active Substance: PALBOCICLIB
     Dosage: 125 MG, CYCLIC (1 CAPSULE DAILY FOR 21 DAYS ON,7 DAYS OFF.)
     Route: 048
     Dates: start: 20190429
  4. IBRANCE [Suspect]
     Active Substance: PALBOCICLIB
     Dosage: 125 MG, CYCLIC (1 CAPSULE DAILY ON 21 DAYS AND OFF7 DAYS.)
     Route: 048

REACTIONS (12)
  - Asthenia [Unknown]
  - Nausea [Unknown]
  - Dry mouth [Unknown]
  - Headache [Unknown]
  - Vomiting [Unknown]
  - Catarrh [Unknown]
  - Fatigue [Unknown]
  - Constipation [Unknown]
  - Alopecia [Unknown]
  - Abdominal discomfort [Unknown]
  - Pyrexia [Unknown]
  - White blood cell count decreased [Unknown]

NARRATIVE: CASE EVENT DATE: 2019
